FAERS Safety Report 21853261 (Version 2)
Quarter: 2023Q1

REPORT INFORMATION
  Report Type: Spontaneous
  Country: ZA (occurrence: ZA)
  Receive Date: 20230112
  Receipt Date: 20230123
  Transmission Date: 20230418
  Serious: Yes (Hospitalization)
  Sender: FDA-Public Use
  Company Number: ZA-TEVA-2023-ZA-2844190

PATIENT
  Age: 22 Year
  Sex: Female

DRUGS (1)
  1. FENTANYL [Suspect]
     Active Substance: FENTANYL
     Indication: Induction of anaesthesia
     Dosage: HIGH-DOSE
     Route: 065

REACTIONS (1)
  - Haemodynamic instability [Recovered/Resolved]
